FAERS Safety Report 10040188 (Version 1)
Quarter: 2014Q1

REPORT INFORMATION
  Report Type: Spontaneous
  Country: PL (occurrence: PL)
  Receive Date: 20140326
  Receipt Date: 20140326
  Transmission Date: 20141002
  Serious: Yes (Hospitalization)
  Sender: FDA-Public Use
  Company Number: PL-ROCHE-1366750

PATIENT
  Age: 10 Year
  Sex: Female
  Weight: 32 kg

DRUGS (4)
  1. CYMEVENE [Suspect]
     Indication: CYTOMEGALOVIRUS INFECTION
     Route: 042
     Dates: start: 20131015, end: 20131025
  2. METRONIDAZOL [Concomitant]
     Indication: COLITIS ULCERATIVE
     Route: 042
     Dates: start: 20131015
  3. METYPRED [Concomitant]
     Indication: COLITIS ULCERATIVE
     Route: 048
     Dates: start: 201309
  4. SALOFALK [Concomitant]
     Indication: COLITIS ULCERATIVE
     Route: 048
     Dates: start: 2012

REACTIONS (2)
  - General physical health deterioration [Recovered/Resolved]
  - Rash erythematous [Recovered/Resolved]
